FAERS Safety Report 9456239 (Version 1)
Quarter: 2013Q3

REPORT INFORMATION
  Report Type: Spontaneous
  Country: US (occurrence: None)
  Receive Date: 20130812
  Receipt Date: 20130812
  Transmission Date: 20140515
  Serious: Yes (Other)
  Sender: FDA-Public Use
  Company Number: None

PATIENT
  Sex: Male
  Weight: 38.56 kg

DRUGS (2)
  1. FLOMAX [Suspect]
     Dosage: 0.4MG CAP  QDAY  PER GTUBE
     Route: 048
     Dates: start: 2010, end: 2012
  2. FLOMAX [Suspect]
     Dosage: 0.4MG CAP  QDAY  PER GTUBE
     Route: 048
     Dates: start: 2010, end: 2012

REACTIONS (1)
  - Device occlusion [None]
